FAERS Safety Report 7874795-9 (Version None)
Quarter: 2011Q4

REPORT INFORMATION
  Report Type: 
  Country: None (occurrence: None)
  Receive Date: 20111031
  Receipt Date: 20111024
  Transmission Date: 20120403
  Serious: Yes (Other)
  Sender: FDA-Public Use
  Company Number: US-PFIZER INC-2011240216

PATIENT
  Sex: Female
  Weight: 58 kg

DRUGS (1)
  1. ESTRING [Suspect]
     Indication: VULVOVAGINAL DRYNESS
     Dosage: UNK
     Route: 067
     Dates: start: 20110908, end: 20111003

REACTIONS (9)
  - NEURALGIA [None]
  - BREAST TENDERNESS [None]
  - DIZZINESS [None]
  - MUSCLE TIGHTNESS [None]
  - HYPERTENSION [None]
  - CARDIAC FLUTTER [None]
  - HEART RATE DECREASED [None]
  - PALPITATIONS [None]
  - SENSORY DISTURBANCE [None]
